FAERS Safety Report 8803832 (Version 1)
Quarter: 2012Q4

REPORT INFORMATION
  Report Type: 
  Country: US (occurrence: US)
  Receive Date: 20120924
  Receipt Date: 20120924
  Transmission Date: 20130627
  Serious: Yes (Other)
  Sender: FDA-Public Use
  Company Number: US-PFIZER INC-2012231506

PATIENT
  Age: 52 Year
  Sex: Male
  Weight: 86.17 kg

DRUGS (2)
  1. VFEND [Suspect]
     Indication: CANDIDIASIS
     Dosage: 200 mg, 2x/day
     Route: 048
     Dates: start: 20090130
  2. VFEND [Suspect]
     Dosage: 200 mg, 2x/day
     Route: 048
     Dates: start: 20120914, end: 20120917

REACTIONS (4)
  - Deafness [Recovering/Resolving]
  - Headache [Not Recovered/Not Resolved]
  - Pain [Not Recovered/Not Resolved]
  - Ear pain [Not Recovered/Not Resolved]
